FAERS Safety Report 18632943 (Version 1)
Quarter: 2020Q4

REPORT INFORMATION
  Report Type: Report from Study
  Country: CA (occurrence: CA)
  Receive Date: 20201218
  Receipt Date: 20201218
  Transmission Date: 20210114
  Serious: Yes (Other)
  Sender: FDA-Public Use
  Company Number: PHHY2019CA162602

PATIENT
  Age: 62 Year
  Sex: Male

DRUGS (3)
  1. SANDOSTATIN LAR DEPOT [Suspect]
     Active Substance: OCTREOTIDE ACETATE
     Indication: CARCINOID TUMOUR
     Dosage: 30 MG, QMO (EVERY 4 WEEKS)
     Route: 030
     Dates: start: 20190610
  2. SANDOSTATIN LAR DEPOT [Suspect]
     Active Substance: OCTREOTIDE ACETATE
  3. SANDOSTATIN LAR DEPOT [Suspect]
     Active Substance: OCTREOTIDE ACETATE

REACTIONS (10)
  - Dizziness [Unknown]
  - Diarrhoea [Unknown]
  - Muscle spasms [Unknown]
  - Blood pressure increased [Unknown]
  - Fall [Unknown]
  - Abdominal pain [Recovered/Resolved]
  - Pain [Unknown]
  - Abdominal distension [Unknown]
  - Arthralgia [Unknown]
  - Fracture [Unknown]

NARRATIVE: CASE EVENT DATE: 20190611
